FAERS Safety Report 6672687-4 (Version None)
Quarter: 2010Q2

REPORT INFORMATION
  Report Type: 
  Country: None (occurrence: None)
  Receive Date: 20100408
  Receipt Date: 20100322
  Transmission Date: 20101027
  Serious: Yes (Death)
  Sender: FDA-Public Use
  Company Number: US-ROCHE-690939

PATIENT
  Sex: Male

DRUGS (1)
  1. XELODA [Suspect]
     Dosage: TAKEN FOR 14 DAYS EVERY 3 WEEKS
     Route: 048
     Dates: start: 20090309, end: 20090403

REACTIONS (1)
  - DISEASE PROGRESSION [None]
